FAERS Safety Report 9197300 (Version 3)
Quarter: 2013Q4

REPORT INFORMATION
  Report Type: Report from Study
  Country: GB (occurrence: GB)
  Receive Date: 20130328
  Receipt Date: 20131107
  Transmission Date: 20140711
  Serious: Yes (Death, Hospitalization)
  Sender: FDA-Public Use
  Company Number: GB-ROCHE-1208039

PATIENT
  Age: 88 Year
  Sex: Female

DRUGS (15)
  1. RANIBIZUMAB [Suspect]
     Indication: PRODUCT USED FOR UNKNOWN INDICATION
     Route: 050
     Dates: start: 20110211
  2. RANIBIZUMAB [Suspect]
     Route: 050
     Dates: start: 20130208, end: 20130208
  3. FUROSEMIDE [Concomitant]
     Route: 065
     Dates: start: 20111230
  4. AMLODIPINE [Concomitant]
     Route: 065
     Dates: start: 19950103
  5. ETODOLAC [Concomitant]
     Route: 065
     Dates: start: 20091222
  6. HYPROMELLOSE [Concomitant]
     Route: 065
     Dates: start: 2012
  7. HYDROXOCOBALAMIN [Concomitant]
     Route: 065
     Dates: start: 20110615
  8. HYDROXOCOBALAMIN [Concomitant]
     Route: 065
     Dates: start: 20120121
  9. ASPIRIN [Concomitant]
     Route: 065
     Dates: start: 19990927
  10. CALCICHEW [Concomitant]
     Route: 065
     Dates: start: 20100103
  11. RISEDRONATE SODIUM [Concomitant]
     Route: 065
     Dates: start: 20100105
  12. LEVOTHYROXINE SODIUM [Concomitant]
     Route: 065
     Dates: start: 20120105
  13. ATENOLOL [Concomitant]
     Route: 065
     Dates: start: 19950816
  14. AMOXICILLIN [Concomitant]
     Route: 065
     Dates: start: 20120802
  15. AMOXICILLIN [Concomitant]
     Route: 065
     Dates: start: 20120816

REACTIONS (3)
  - Lung neoplasm malignant [Fatal]
  - Malaise [Unknown]
  - Lower respiratory tract infection [Unknown]
